FAERS Safety Report 23364468 (Version 1)
Quarter: 2024Q1

REPORT INFORMATION
  Report Type: Spontaneous
  Country: FR (occurrence: FR)
  Receive Date: 20240104
  Receipt Date: 20240104
  Transmission Date: 20240410
  Serious: Yes (Life-Threatening)
  Sender: FDA-Public Use
  Company Number: None

PATIENT
  Age: 67 Year
  Sex: Female

DRUGS (6)
  1. DEXAMETHASONE [Suspect]
     Active Substance: DEXAMETHASONE
     Indication: Anaesthesia
     Dosage: UNK (DOSE INCONNUE)
     Route: 042
     Dates: start: 20231127, end: 20231127
  2. KETAMINE [Suspect]
     Active Substance: KETAMINE
     Indication: Anaesthesia
     Dosage: UNK (DOSE INCONNUE)
     Route: 042
     Dates: start: 20231127, end: 20231127
  3. METRONIDAZOLE [Suspect]
     Active Substance: METRONIDAZOLE
     Indication: Anaesthesia
     Dosage: UNK (DOSE INCONNUE)
     Route: 042
     Dates: start: 20231127, end: 20231127
  4. PROPOFOL [Suspect]
     Active Substance: PROPOFOL
     Indication: Anaesthesia
     Dosage: UNK (DOSE INCONNUE)
     Route: 042
     Dates: start: 20231127, end: 20231127
  5. ROCURONIUM BROMIDE [Suspect]
     Active Substance: ROCURONIUM BROMIDE
     Indication: Anaesthesia
     Dosage: UNK (DOSE INCONNUE)
     Route: 042
     Dates: start: 20231127, end: 20231127
  6. SUFENTANIL [Suspect]
     Active Substance: SUFENTANIL
     Indication: Anaesthesia
     Dosage: UNK (DOSE INCONNUE)
     Route: 042
     Dates: start: 20231127, end: 20231127

REACTIONS (1)
  - Anaphylactic shock [Recovered/Resolved]

NARRATIVE: CASE EVENT DATE: 20231127
